FAERS Safety Report 5116762-4 (Version None)
Quarter: 2006Q3

REPORT INFORMATION
  Report Type: 
  Country: None (occurrence: None)
  Receive Date: 20060925
  Receipt Date: 20060914
  Transmission Date: 20061208
  Serious: Yes (Death)
  Sender: FDA-Public Use
  Company Number: 2006113367

PATIENT
  Age: 43 Year
  Sex: Female

DRUGS (6)
  1. ALPRAZOLAM [Suspect]
     Dosage: (0.5 MG), ORAL
     Route: 048
  2. METHADONE HCL [Suspect]
     Dosage: (10 MG), ORAL
     Route: 048
  3. MORPHINE [Suspect]
     Dosage: (15 MG),ORAL
     Route: 048
  4. DYAZIDE [Suspect]
     Dosage: ORAL
     Route: 048
  5. IBUPROFEN [Suspect]
     Dosage: ORAL
     Route: 048
  6. DEXTROAMPHETAMINE (DEXAMFETAMINE) [Suspect]
     Dosage: ORAL
     Route: 048

REACTIONS (4)
  - CARDIAC ARREST [None]
  - COMPLETED SUICIDE [None]
  - MULTIPLE DRUG OVERDOSE INTENTIONAL [None]
  - RESPIRATORY ARREST [None]
